FAERS Safety Report 8780595 (Version 1)
Quarter: 2012Q4

REPORT INFORMATION
  Report Type: 
  Country: US (occurrence: US)
  Receive Date: 20120913
  Receipt Date: 20120913
  Transmission Date: 20130627
  Serious: No
  Sender: FDA-Public Use
  Company Number: US-PFIZER INC-2012224063

PATIENT
  Age: 75 Year
  Sex: Female
  Weight: 86.62 kg

DRUGS (23)
  1. FLECTOR [Suspect]
     Indication: PAIN
     Dosage: UNK
  2. LACTULOSE [Suspect]
     Indication: CONSTIPATION
     Dosage: unknown dose (2 spoons) two times a day
  3. LIPITOR [Concomitant]
     Dosage: UNK
  4. TRAZODONE [Concomitant]
     Dosage: UNK
  5. GABAPENTIN [Concomitant]
     Dosage: UNK
  6. MELOXICAM [Concomitant]
     Dosage: UNK
  7. OMEPRAZOLE [Concomitant]
     Dosage: UNK
  8. HYDROCODONE [Concomitant]
     Dosage: UNK
  9. METFORMIN [Concomitant]
     Dosage: UNK
  10. FERROUS SULFATE [Concomitant]
     Dosage: UNK
  11. NIFEDIPINE [Concomitant]
     Dosage: UNK
  12. CARBAMAZEPINE [Concomitant]
     Dosage: UNK
  13. PAROXETINE [Concomitant]
     Dosage: UNK
  14. ASPIRIN [Concomitant]
     Dosage: 325 mg,daily
  15. XELODA [Concomitant]
     Indication: NEOPLASM MALIGNANT
     Dosage: one week on and one week off
  16. PRAVASTATIN [Concomitant]
     Dosage: UNK
  17. BUPROPION HYDROCHLORIDE [Concomitant]
     Dosage: UNK
  18. SENNA PLUS [Concomitant]
     Dosage: UNK
  19. NORCO [Concomitant]
     Dosage: UNK
  20. VITAMIN B COMPLEX [Concomitant]
     Dosage: UNK
  21. VITAMIN D [Concomitant]
     Dosage: UNK
  22. MULTIVITAMINS [Concomitant]
     Dosage: UNK
  23. BENAZEPRIL [Concomitant]
     Dosage: half a pill of 10mg daily

REACTIONS (5)
  - Expired drug administered [Unknown]
  - Drug ineffective [Unknown]
  - Muscle spasms [Recovered/Resolved]
  - Drug intolerance [Unknown]
  - Gait disturbance [Unknown]
